FAERS Safety Report 24734446 (Version 1)
Quarter: 2024Q4

REPORT INFORMATION
  Report Type: Spontaneous
  Country: IT (occurrence: IT)
  Receive Date: 20241214
  Receipt Date: 20241214
  Transmission Date: 20250114
  Serious: Yes (Hospitalization, Other)
  Sender: ALKEM
  Company Number: None

PATIENT
  Age: 68 Year
  Sex: Female

DRUGS (2)
  1. MYCOPHENOLATE MOFETIL [Suspect]
     Active Substance: MYCOPHENOLATE MOFETIL
     Indication: Immunosuppressant drug therapy
     Dosage: UNK
     Route: 065
  2. TACROLIMUS [Suspect]
     Active Substance: TACROLIMUS
     Indication: Immunosuppressant drug therapy
     Dosage: UNK
     Route: 065

REACTIONS (7)
  - Hypogammaglobulinaemia [Recovering/Resolving]
  - Respiratory failure [Recovering/Resolving]
  - Stenotrophomonas infection [Recovering/Resolving]
  - Respiratory tract infection [Recovering/Resolving]
  - Bronchiectasis [Recovering/Resolving]
  - Pseudomonas infection [Recovering/Resolving]
  - Aspergillus infection [Recovering/Resolving]
